FAERS Safety Report 6427231-3 (Version None)
Quarter: 2009Q4

REPORT INFORMATION
  Report Type: 
  Country: None (occurrence: None)
  Receive Date: 20091104
  Receipt Date: 20091026
  Transmission Date: 20100525
  Serious: Yes (Other)
  Sender: FDA-Public Use
  Company Number: A0813396A

PATIENT
  Sex: Female

DRUGS (3)
  1. LOVAZA [Suspect]
     Indication: BLOOD TRIGLYCERIDES INCREASED
     Dosage: 1TAB PER DAY
     Route: 048
     Dates: start: 20080901
  2. FLAX SEED OIL [Concomitant]
  3. SUPPLEMENT [Concomitant]

REACTIONS (7)
  - BLOOD CHOLESTEROL INCREASED [None]
  - BLOOD TRIGLYCERIDES INCREASED [None]
  - HYPERSENSITIVITY [None]
  - INCREASED APPETITE [None]
  - LIVER FUNCTION TEST ABNORMAL [None]
  - LOW DENSITY LIPOPROTEIN INCREASED [None]
  - WEIGHT INCREASED [None]
